FAERS Safety Report 24139805 (Version 2)
Quarter: 2024Q4

REPORT INFORMATION
  Report Type: Spontaneous
  Country: DE (occurrence: DE)
  Receive Date: 20240726
  Receipt Date: 20241112
  Transmission Date: 20250114
  Serious: Yes (Death, Hospitalization)
  Sender: ABBVIE
  Company Number: DE-DCGMA-24203579

PATIENT
  Age: 24 Year
  Sex: Female
  Weight: 48 kg

DRUGS (13)
  1. SEVOFLURANE [Suspect]
     Active Substance: SEVOFLURANE
     Indication: Sedation
     Dosage: DOSAGE: AFTER SEDATION
     Route: 055
     Dates: end: 20240620
  2. LACOSAMIDE [Concomitant]
     Active Substance: LACOSAMIDE
     Indication: Partial seizures
     Dosage: DAILY DOSE: 300 MG EVERY 1 DAY
     Route: 042
  3. PERAMPANEL [Concomitant]
     Active Substance: PERAMPANEL
     Indication: Partial seizures
     Dosage: DAILY DOSE: 12 MG EVERY 1 DAY
     Route: 048
  4. Piritramid [Concomitant]
     Indication: Pain
     Dosage: DOSAGE: AFTER SEDATION
     Route: 042
  5. MEROPENEM [Concomitant]
     Active Substance: MEROPENEM
     Indication: Infection
     Route: 042
  6. FOSFOMYCIN [Concomitant]
     Active Substance: FOSFOMYCIN
     Indication: Infection
     Route: 042
  7. HEPARIN [Concomitant]
     Active Substance: HEPARIN SODIUM
     Indication: Thrombosis prophylaxis
     Route: 042
  8. FENTANYL [Concomitant]
     Active Substance: FENTANYL
     Indication: Pain
     Dosage: DOSAGE: AFTER SEDATION
     Route: 042
  9. ESKETAMINE [Concomitant]
     Active Substance: ESKETAMINE
     Indication: Sedation
     Route: 042
  10. MIDAZOLAM [Concomitant]
     Active Substance: MIDAZOLAM
     Indication: Sedation
     Route: 042
  11. REMIFENTANIL [Concomitant]
     Active Substance: REMIFENTANIL
     Indication: Pain
     Dosage: DOSAGE: AFTER SEDATION
     Route: 042
  12. PROPOFOL [Concomitant]
     Active Substance: PROPOFOL
     Indication: Sedation
     Route: 042
  13. LAMOTRIGINE [Concomitant]
     Active Substance: LAMOTRIGINE
     Indication: Partial seizures
     Dosage: 2X250MG FOR YEARS
     Route: 048

REACTIONS (3)
  - Fluorosis [Fatal]
  - Articular calcification [Fatal]
  - Pain [Fatal]

NARRATIVE: CASE EVENT DATE: 20240601
